FAERS Safety Report 15878291 (Version 1)
Quarter: 2019Q1

REPORT INFORMATION
  Report Type: Spontaneous
  Country: US (occurrence: US)
  Receive Date: 20190128
  Receipt Date: 20190128
  Transmission Date: 20190417
  Serious: No
  Sender: FDA-Public Use
  Company Number: US-PFIZER INC-2019033060

PATIENT
  Age: 14 Month
  Sex: Female
  Weight: 11.34 kg

DRUGS (1)
  1. CHILDRENS ADVIL [Suspect]
     Active Substance: IBUPROFEN
     Dosage: UNK
     Dates: start: 20190117

REACTIONS (6)
  - Red ear syndrome [Unknown]
  - Hair colour changes [Unknown]
  - Rash generalised [Unknown]
  - Ocular hyperaemia [Unknown]
  - Hypersensitivity [Not Recovered/Not Resolved]
  - Pain [Unknown]

NARRATIVE: CASE EVENT DATE: 20190117
